FAERS Safety Report 5471867-3 (Version None)
Quarter: 2007Q3

REPORT INFORMATION
  Report Type: 
  Country: None (occurrence: None)
  Receive Date: 20070928
  Receipt Date: 20070712
  Transmission Date: 20080115
  Serious: Yes (Hospitalization)
  Sender: FDA-Public Use
  Company Number: US-BRISTOL-MYERS SQUIBB COMPANY-13844378

PATIENT
  Age: 58 Year
  Sex: Female
  Weight: 121 kg

DRUGS (15)
  1. DEFINITY [Suspect]
     Indication: ECHOCARDIOGRAM
     Dosage: 1 VIAL OF 1.5 ML PERFLUTREN DILUTED TO A VOLUME OF 10 ML WITH NORMAL SALINE
     Route: 042
     Dates: start: 20070711
  2. LASIX [Concomitant]
  3. DIVALPROEX SODIUM [Concomitant]
  4. NITROGLYCERIN [Concomitant]
  5. NITROGLYCERIN SL [Concomitant]
  6. TOPAMAX [Concomitant]
  7. INSULIN GLARGINE [Concomitant]
     Route: 058
  8. EZETIMIBE [Concomitant]
  9. LISINOPRIL [Concomitant]
  10. FLUOXETINE [Concomitant]
  11. METOPROLOL SUCCINATE [Concomitant]
  12. TRAZODONE HCL [Concomitant]
  13. SIMVASTATIN [Concomitant]
  14. CARISOPRODOL [Concomitant]
  15. TIGECYCLINE [Concomitant]

REACTIONS (2)
  - BACK PAIN [None]
  - NECK PAIN [None]
